FAERS Safety Report 9340844 (Version 4)
Quarter: 2013Q4

REPORT INFORMATION
  Report Type: Spontaneous
  Country: US (occurrence: US)
  Receive Date: 20130610
  Receipt Date: 20131030
  Transmission Date: 20140711
  Serious: Yes (Other)
  Sender: FDA-Public Use
  Company Number: US-009507513-1306USA004048

PATIENT
  Sex: Female

DRUGS (3)
  1. PEG-INTRON [Suspect]
     Indication: HEPATITIS C
     Dosage: UNK
     Dates: start: 20130510
  2. REBETOL [Suspect]
     Indication: HEPATITIS C
     Dosage: UNK
     Route: 048
     Dates: start: 20130510
  3. VICTRELIS [Suspect]
     Indication: HEPATITIS C
     Dosage: UNK
     Route: 048
     Dates: start: 20130614

REACTIONS (15)
  - White blood cell count decreased [Unknown]
  - Leukopenia [Unknown]
  - White blood cell count decreased [Unknown]
  - Anxiety [Unknown]
  - Fatigue [Unknown]
  - Influenza like illness [Unknown]
  - Dysgeusia [Unknown]
  - White blood cell count decreased [Unknown]
  - Agitation [Unknown]
  - Memory impairment [Unknown]
  - Dysgeusia [Unknown]
  - Weight decreased [Unknown]
  - Fatigue [Unknown]
  - Alopecia [Unknown]
  - Premature ageing [Unknown]
